APPROVED DRUG PRODUCT: EMTRICITABINE
Active Ingredient: EMTRICITABINE
Strength: 200MG
Dosage Form/Route: CAPSULE;ORAL
Application: A079188 | Product #001 | TE Code: AB
Applicant: AUROBINDO PHARMA LTD
Approved: Mar 15, 2023 | RLD: No | RS: No | Type: RX